FAERS Safety Report 9747758 (Version 1)
Quarter: 2013Q4

REPORT INFORMATION
  Report Type: Spontaneous
  Country: GB (occurrence: None)
  Receive Date: 20131206
  Receipt Date: 20131206
  Transmission Date: 20140711
  Serious: Yes (Other)
  Sender: FDA-Public Use
  Company Number: KAD201311-001544

PATIENT
  Age: 44 Year
  Sex: Male

DRUGS (3)
  1. RIBAVIRIN [Suspect]
     Indication: HEPATITIS C
     Route: 048
     Dates: start: 20120920
  2. PEGINTERFERON ALFA-2B [Suspect]
     Indication: HEPATITIS C
     Route: 058
     Dates: start: 20120920
  3. TELAPREVIR [Suspect]
     Indication: HEPATITIS C
     Route: 048
     Dates: start: 20120920

REACTIONS (10)
  - Anaemia [None]
  - Anal pruritus [None]
  - Anorectal discomfort [None]
  - Fatigue [None]
  - Hypotension [None]
  - Proctalgia [None]
  - Rash [None]
  - Pain [None]
  - Nausea [None]
  - Lethargy [None]
